FAERS Safety Report 4378733-5 (Version None)
Quarter: 2004Q2

REPORT INFORMATION
  Report Type: 
  Country: None (occurrence: None)
  Receive Date: 20040609
  Receipt Date: 20040526
  Transmission Date: 20050107
  Serious: Yes (Other)
  Sender: FDA-Public Use
  Company Number: USA040568656

PATIENT
  Age: 58 Year
  Sex: Male

DRUGS (6)
  1. HUMULIN R [Suspect]
     Indication: DIABETES MELLITUS
  2. HUMULIN N [Suspect]
     Indication: DIABETES MELLITUS
  3. HUMALOG [Suspect]
     Indication: DIABETES MELLITUS
  4. ACTOS [Concomitant]
  5. STARLIX [Concomitant]
  6. AMARYL [Concomitant]

REACTIONS (4)
  - GLAUCOMA [None]
  - HYPOGLYCAEMIA [None]
  - ROAD TRAFFIC ACCIDENT [None]
  - SPINAL CORD INJURY [None]
